FAERS Safety Report 15466122 (Version 3)
Quarter: 2019Q4

REPORT INFORMATION
  Report Type: Spontaneous
  Country: US (occurrence: US)
  Receive Date: 20181004
  Receipt Date: 20191022
  Transmission Date: 20200122
  Serious: Yes (Death, Hospitalization, Other)
  Sender: FDA-Public Use
  Company Number: US-TEVA-2018-US-959871

PATIENT
  Sex: Female

DRUGS (4)
  1. ACTAVIS CLONAZEPAM TABLETS [Suspect]
     Active Substance: CLONAZEPAM
     Indication: SLEEP DISORDER
     Route: 065
     Dates: start: 2012
  2. CODEINE [Concomitant]
     Active Substance: CODEINE
  3. TRAMADOL. [Concomitant]
     Active Substance: TRAMADOL
  4. ZYPREXA [Concomitant]
     Active Substance: OLANZAPINE

REACTIONS (11)
  - Gait inability [Unknown]
  - Spinal cord injury [Unknown]
  - Ataxia [Unknown]
  - Pain [Unknown]
  - Bone disorder [Unknown]
  - Seizure [Unknown]
  - Yellow skin [Unknown]
  - Fall [Unknown]
  - Cardiac arrest [Fatal]
  - Multi-organ disorder [Unknown]
  - Thrombosis [Unknown]

NARRATIVE: CASE EVENT DATE: 201711
